FAERS Safety Report 6049115-5 (Version None)
Quarter: 2009Q1

REPORT INFORMATION
  Report Type: 
  Country: None (occurrence: None)
  Receive Date: 20090123
  Receipt Date: 20090113
  Transmission Date: 20090719
  Serious: Yes (Hospitalization)
  Sender: FDA-Public Use
  Company Number: US-BAYER-200837910NA

PATIENT
  Age: 40 Year
  Sex: Female
  Weight: 85 kg

DRUGS (1)
  1. MAGNEVIST [Suspect]
     Indication: DRUG USE FOR UNKNOWN INDICATION
     Dosage: TOTAL DAILY DOSE: 16 ML
     Dates: start: 20081105, end: 20081105

REACTIONS (13)
  - ANAPHYLACTIC REACTION [None]
  - ANXIETY [None]
  - CYANOSIS [None]
  - DYSPNOEA [None]
  - FLUSHING [None]
  - HYPERHIDROSIS [None]
  - LETHARGY [None]
  - PALLOR [None]
  - RASH MACULAR [None]
  - RESPIRATORY DISTRESS [None]
  - RESPIRATORY RATE INCREASED [None]
  - TACHYCARDIA [None]
  - WHEEZING [None]
